FAERS Safety Report 13909886 (Version 1)
Quarter: 2017Q3

REPORT INFORMATION
  Report Type: Spontaneous
  Country: US (occurrence: US)
  Receive Date: 20170828
  Receipt Date: 20170828
  Transmission Date: 20171127
  Serious: No
  Sender: FDA-Public Use
  Company Number: US-ENDO PHARMACEUTICALS INC-2016-006994

PATIENT
  Sex: Male
  Weight: 118.04 kg

DRUGS (14)
  1. PREDNISONE TABLETS [Suspect]
     Active Substance: PREDNISONE
     Dosage: 10 MG, UNKNOWN
     Route: 048
  2. LANTUS [Concomitant]
     Active Substance: INSULIN GLARGINE
     Indication: DIABETES MELLITUS
  3. MAGNESIUM OXIDE TABLETS 400 MG [Suspect]
     Active Substance: MAGNESIUM OXIDE
     Indication: MINERAL SUPPLEMENTATION
     Dosage: 1 DF, OD
     Route: 048
  4. ZOLPIDEM [Concomitant]
     Active Substance: ZOLPIDEM\ZOLPIDEM TARTRATE
     Indication: SLEEP DISORDER
  5. ASPIRIN                            /00002701/ [Concomitant]
     Active Substance: ASPIRIN
     Indication: CARDIAC DISORDER
  6. CENTRUM SILVER                     /02363801/ [Concomitant]
     Active Substance: MINERALS\VITAMINS
     Indication: PRODUCT USED FOR UNKNOWN INDICATION
  7. PREDNISONE TABLETS [Suspect]
     Active Substance: PREDNISONE
     Indication: ANAEMIA
     Dosage: 20 MG, OD
     Route: 048
  8. PREDNISONE TABLETS [Suspect]
     Active Substance: PREDNISONE
     Dosage: 20 MG, OD
     Route: 048
  9. CALCIUM 500+D [Concomitant]
     Active Substance: CALCIUM\VITAMIN D
     Indication: PRODUCT USED FOR UNKNOWN INDICATION
  10. EMERGEN C [Concomitant]
     Active Substance: MINERALS\VITAMINS
     Indication: IMMUNE SYSTEM DISORDER
  11. MAGNESIUM OXIDE TABLETS 400 MG [Suspect]
     Active Substance: MAGNESIUM OXIDE
     Dosage: 10 MG, OD
     Route: 048
  12. CARVEDILOL. [Concomitant]
     Active Substance: CARVEDILOL
     Indication: CARDIAC DISORDER
  13. PANTOPRAZOLE [Concomitant]
     Active Substance: PANTOPRAZOLE
     Indication: GASTROOESOPHAGEAL REFLUX DISEASE
  14. HUMALOG [Concomitant]
     Active Substance: INSULIN LISPRO
     Indication: DIABETES MELLITUS

REACTIONS (5)
  - Rash [Unknown]
  - Drug ineffective [Unknown]
  - Condition aggravated [Unknown]
  - Balance disorder [Unknown]
  - Anaemia [Unknown]
